FAERS Safety Report 4745296-1 (Version None)
Quarter: 2005Q3

REPORT INFORMATION
  Report Type: 
  Country: None (occurrence: None)
  Receive Date: 20050812
  Receipt Date: 20050804
  Transmission Date: 20060218
  Serious: Yes (Death, Hospitalization, Other)
  Sender: FDA-Public Use
  Company Number: 2005111391

PATIENT
  Age: 74 Year
  Sex: Female

DRUGS (5)
  1. FELDENE [Suspect]
     Indication: BACK PAIN
     Dosage: ORAL
     Route: 048
     Dates: start: 20040706
  2. EFFERALGAN (PARACETAMOL) [Suspect]
     Indication: BACK PAIN
     Dosage: ORAL
     Route: 048
     Dates: start: 20040706
  3. MUCOMYST [Suspect]
     Indication: BACK PAIN
     Dosage: ORAL
     Route: 048
     Dates: start: 20040706
  4. BROMAZEPAM (BROMAZEPAM) [Suspect]
     Indication: BACK PAIN
     Dosage: ORAL
     Route: 048
     Dates: start: 20040706
  5. MULTIVITAMINS WITH MINERALS (MULTIVITAMINS WITH MINERALS) [Concomitant]

REACTIONS (8)
  - ACUTE RESPIRATORY DISTRESS SYNDROME [None]
  - BRONCHOPLEURAL FISTULA [None]
  - HYPERLACTACIDAEMIA [None]
  - HYPOXIA [None]
  - LEUKOCYTOSIS [None]
  - NAUSEA [None]
  - PURULENCE [None]
  - SEPTIC SHOCK [None]
